FAERS Safety Report 22281385 (Version 2)
Quarter: 2023Q2

REPORT INFORMATION
  Report Type: Report from Study
  Country: IT (occurrence: IT)
  Receive Date: 20230504
  Receipt Date: 20230518
  Transmission Date: 20230721
  Serious: Yes (Other)
  Sender: FDA-Public Use
  Company Number: IT-TEVA-2023-IT-2883060

PATIENT
  Age: 74 Year
  Sex: Female

DRUGS (2)
  1. PEMETREXED [Suspect]
     Active Substance: PEMETREXED
     Indication: Non-small cell lung cancer
     Dosage: FOUR CYCLES EVERY 3 WEEKS
     Route: 065
  2. PEMBROLIZUMAB [Suspect]
     Active Substance: PEMBROLIZUMAB
     Indication: Non-small cell lung cancer
     Dosage: FOUR CYCLES EVERY 3 WEEKS
     Route: 065

REACTIONS (2)
  - Acute kidney injury [Unknown]
  - Proteinuria [Unknown]
